FAERS Safety Report 6007473-1 (Version None)
Quarter: 2008Q4

REPORT INFORMATION
  Report Type: 
  Country: None (occurrence: None)
  Receive Date: 20081217
  Receipt Date: 20080425
  Transmission Date: 20090506
  Serious: No
  Sender: FDA-Public Use
  Company Number: US-ASTRAZENECA-2008UW08472

PATIENT
  Age: 82 Year
  Sex: Female
  Weight: 68.9 kg

DRUGS (9)
  1. CRESTOR [Suspect]
     Indication: BLOOD CHOLESTEROL INCREASED
     Dosage: TWO TIMES PER WEEK, THEN THREE TIMES PER WEEK
     Route: 048
     Dates: start: 20080401
  2. PREDNISONE TAB [Concomitant]
  3. METHOTREXATE [Concomitant]
  4. NEURONTIN [Concomitant]
  5. CALCIUM [Concomitant]
  6. ASPIRIN [Concomitant]
  7. FOLIC ACID [Concomitant]
  8. FOSAMAX [Concomitant]
  9. NORVASC [Concomitant]

REACTIONS (1)
  - OEDEMA PERIPHERAL [None]
